FAERS Safety Report 9200455 (Version 1)
Quarter: 2013Q1

REPORT INFORMATION
  Report Type: Spontaneous
  Country: FR (occurrence: FR)
  Receive Date: 20130329
  Receipt Date: 20130329
  Transmission Date: 20140127
  Serious: Yes (Hospitalization, Other)
  Sender: FDA-Public Use
  Company Number: FR-ABBOTT-13P-056-1068122-00

PATIENT
  Age: 31 None
  Sex: Male

DRUGS (6)
  1. NORVIR [Suspect]
     Indication: HIV INFECTION
     Route: 048
     Dates: start: 20121009, end: 20121227
  2. TRUVADA [Suspect]
     Indication: HIV INFECTION
     Dosage: 200MG/245MG
     Route: 048
     Dates: start: 20121009, end: 20121227
  3. TRUVADA [Suspect]
     Dates: start: 20130131
  4. DARUNAVIR [Suspect]
     Indication: HIV INFECTION
     Route: 048
     Dates: start: 20121009, end: 20121227
  5. RALTEGRAVIR [Suspect]
     Indication: HIV INFECTION
     Route: 048
     Dates: start: 20121009, end: 20121227
  6. RALTEGRAVIR [Suspect]
     Dates: start: 20130131

REACTIONS (5)
  - Condition aggravated [Recovered/Resolved]
  - Immune reconstitution inflammatory syndrome [Recovered/Resolved]
  - JC virus test positive [Recovered/Resolved]
  - Unevaluable event [Recovered/Resolved]
  - Gait disturbance [Recovered/Resolved]
